FAERS Safety Report 11170268 (Version 2)
Quarter: 2015Q3

REPORT INFORMATION
  Report Type: Spontaneous
  Country: IT (occurrence: IT)
  Receive Date: 20150608
  Receipt Date: 20150713
  Transmission Date: 20151125
  Serious: Yes (Death, Hospitalization, Other)
  Sender: FDA-Public Use
  Company Number: IT-TEVA-568368ISR

PATIENT
  Age: 35 Year
  Sex: Male

DRUGS (8)
  1. BLEOMYCIN [Suspect]
     Active Substance: BLEOMYCIN SULFATE
     Indication: EXTRAGONADAL PRIMARY GERM CELL TUMOUR
     Route: 065
     Dates: start: 200506, end: 200510
  2. GEMCITABINE [Concomitant]
     Active Substance: GEMCITABINE\GEMCITABINE HYDROCHLORIDE
     Indication: EXTRAGONADAL PRIMARY GERM CELL TUMOUR
     Route: 065
     Dates: end: 201111
  3. ETOPOSIDE. [Suspect]
     Active Substance: ETOPOSIDE
     Indication: EXTRAGONADAL PRIMARY GERM CELL TUMOUR
     Route: 065
     Dates: start: 200506, end: 200510
  4. IFOSFAMIDE. [Concomitant]
     Active Substance: IFOSFAMIDE
     Indication: EXTRAGONADAL PRIMARY GERM CELL TUMOUR
     Route: 065
     Dates: start: 201112, end: 201209
  5. EPIRUBICIN [Suspect]
     Active Substance: EPIRUBICIN
     Indication: EXTRAGONADAL PRIMARY GERM CELL TUMOUR
     Route: 065
     Dates: start: 201306
  6. PACLITAXEL. [Concomitant]
     Active Substance: PACLITAXEL
     Indication: EXTRAGONADAL PRIMARY GERM CELL TUMOUR
     Route: 065
     Dates: end: 201101
  7. CISPLATIN. [Suspect]
     Active Substance: CISPLATIN
     Indication: EXTRAGONADAL PRIMARY GERM CELL TUMOUR
     Route: 065
     Dates: start: 200506, end: 200510
  8. IFOSFAMIDE. [Concomitant]
     Active Substance: IFOSFAMIDE
     Indication: EXTRAGONADAL PRIMARY GERM CELL TUMOUR
     Route: 065
     Dates: start: 201211

REACTIONS (9)
  - Neutropenia [Unknown]
  - Thrombocytopenia [Unknown]
  - Condition aggravated [Unknown]
  - Extragonadal primary germ cell tumour [Fatal]
  - Myopathy [Unknown]
  - Ascites [Unknown]
  - Leukopenia [Unknown]
  - Fatigue [Unknown]
  - Vertebral lesion [Unknown]
